FAERS Safety Report 10587820 (Version 13)
Quarter: 2015Q3

REPORT INFORMATION
  Report Type: Report from Study
  Country: US (occurrence: US)
  Receive Date: 20141117
  Receipt Date: 20150909
  Transmission Date: 20151125
  Serious: Yes (Other)
  Sender: FDA-Public Use
  Company Number: US-SA-2014SA155523

PATIENT
  Age: 46 Year
  Sex: Female

DRUGS (9)
  1. AUBAGIO [Suspect]
     Active Substance: TERIFLUNOMIDE
     Indication: MULTIPLE SCLEROSIS
     Route: 048
     Dates: start: 20141104
  2. AUBAGIO [Suspect]
     Active Substance: TERIFLUNOMIDE
     Indication: MULTIPLE SCLEROSIS
     Route: 048
  3. LEXAPRO [Concomitant]
     Active Substance: ESCITALOPRAM OXALATE
  4. VITAMIN B12 [Concomitant]
     Active Substance: CYANOCOBALAMIN
  5. COQ10 [Concomitant]
     Active Substance: UBIDECARENONE
  6. AMBIEN [Concomitant]
     Active Substance: ZOLPIDEM TARTRATE
  7. AMPYRA [Suspect]
     Active Substance: DALFAMPRIDINE
     Route: 065
     Dates: start: 20150728
  8. VITAMIN C [Concomitant]
     Active Substance: ASCORBIC ACID
  9. VITAMIN D3 [Concomitant]
     Active Substance: CHOLECALCIFEROL

REACTIONS (31)
  - Walking aid user [Unknown]
  - Asthenia [Unknown]
  - Aphasia [Unknown]
  - Depression [Recovering/Resolving]
  - Immune system disorder [Unknown]
  - Disturbance in attention [Not Recovered/Not Resolved]
  - Crying [Unknown]
  - Inappropriate schedule of drug administration [Unknown]
  - Malaise [Recovering/Resolving]
  - Peripheral sensory neuropathy [Unknown]
  - Insomnia [Unknown]
  - Fall [Unknown]
  - Confusional state [Unknown]
  - Mood altered [Recovering/Resolving]
  - Fatigue [Unknown]
  - Balance disorder [Unknown]
  - Speech disorder [Unknown]
  - Weight decreased [Unknown]
  - Headache [Unknown]
  - Paraesthesia [Unknown]
  - Urinary retention [Unknown]
  - Constipation [Unknown]
  - Balance disorder [Not Recovered/Not Resolved]
  - Anxiety [Unknown]
  - Memory impairment [Unknown]
  - Anger [Unknown]
  - Gait disturbance [Recovering/Resolving]
  - Increased appetite [Unknown]
  - Hypoaesthesia [Unknown]
  - Arthralgia [Unknown]
  - Hypoaesthesia oral [Unknown]

NARRATIVE: CASE EVENT DATE: 2014
